FAERS Safety Report 11570835 (Version 1)
Quarter: 2015Q3

REPORT INFORMATION
  Report Type: Spontaneous
  Country: US (occurrence: US)
  Receive Date: 20150929
  Receipt Date: 20150929
  Transmission Date: 20151125
  Serious: Yes (Other)
  Sender: FDA-Public Use
  Company Number: US-BAYER-2015-428401

PATIENT
  Age: 61 Year
  Sex: Male

DRUGS (4)
  1. CAFFEINE. [Suspect]
     Active Substance: CAFFEINE
     Indication: MUSCULOSKELETAL PAIN
     Dosage: 5-20 PACKETS DAILY
  2. ACETYLSALICYLIC ACID (} 100 MG) [Suspect]
     Active Substance: ASPIRIN
     Indication: STRESS
  3. ACETYLSALICYLIC ACID (} 100 MG) [Suspect]
     Active Substance: ASPIRIN
     Indication: MUSCULOSKELETAL PAIN
     Dosage: 5-20 PACKETS DAILY
  4. CAFFEINE. [Suspect]
     Active Substance: CAFFEINE
     Indication: STRESS

REACTIONS (6)
  - Psychotic disorder [Recovered/Resolved]
  - Overdose [None]
  - Hallucination, visual [Recovered/Resolved]
  - Paranoia [Recovered/Resolved]
  - Drug dependence [None]
  - Dementia [None]
